FAERS Safety Report 10737756 (Version 9)
Quarter: 2015Q2

REPORT INFORMATION
  Report Type: Spontaneous
  Country: US (occurrence: US)
  Receive Date: 20150126
  Receipt Date: 20150610
  Transmission Date: 20150821
  Serious: Yes (Hospitalization)
  Sender: FDA-Public Use
  Company Number: US-UNITED THERAPEUTICS-UNT-2015-000311

PATIENT
  Age: 65 Year
  Sex: Female
  Weight: 90.7 kg

DRUGS (6)
  1. REMODULIN [Suspect]
     Active Substance: TREPROSTINIL
     Dosage: 0.088 ?G/KG, CONTINUING
     Route: 041
     Dates: start: 20080918
  2. LEVAQUIN [Suspect]
     Active Substance: LEVOFLOXACIN
     Indication: WOUND
  3. REMODULIN [Suspect]
     Active Substance: TREPROSTINIL
     Dosage: 0.102 ?G/KG, CONTINUING
     Route: 041
     Dates: start: 20090916
  4. TRACLEER [Concomitant]
     Active Substance: BOSENTAN\BOSENTAN MONOHYDRATE
     Indication: PRODUCT USED FOR UNKNOWN INDICATION
  5. REMODULIN [Suspect]
     Active Substance: TREPROSTINIL
     Indication: PULMONARY HYPERTENSION
     Dosage: 0.088 ?G/KG, CONTINUING
     Route: 041
     Dates: start: 20080918
  6. COUMADIN [Concomitant]
     Active Substance: WARFARIN SODIUM
     Indication: PRODUCT USED FOR UNKNOWN INDICATION

REACTIONS (12)
  - Localised infection [Unknown]
  - Rash generalised [Unknown]
  - Fluid retention [Not Recovered/Not Resolved]
  - Sepsis [Unknown]
  - Deafness [Not Recovered/Not Resolved]
  - Device related infection [Unknown]
  - Injury [Unknown]
  - Injection site exfoliation [Unknown]
  - Wound [Unknown]
  - Bacteraemia [Unknown]
  - Injection site erythema [Unknown]
  - Injection site pruritus [Unknown]

NARRATIVE: CASE EVENT DATE: 20141231
